FAERS Safety Report 15318860 (Version 1)
Quarter: 2018Q3

REPORT INFORMATION
  Report Type: Spontaneous
  Country: US (occurrence: US)
  Receive Date: 20180817
  Receipt Date: 20180817
  Transmission Date: 20181010
  Serious: Yes (Disabling)
  Sender: FDA-Public Use
  Company Number: None

PATIENT
  Age: 67 Year
  Sex: Female
  Weight: 80.74 kg

DRUGS (29)
  1. DUONEB [Concomitant]
     Active Substance: ALBUTEROL SULFATE\IPRATROPIUM BROMIDE
  2. MSM COMPLEX [Concomitant]
  3. PREMARIN [Concomitant]
     Active Substance: ESTROGENS, CONJUGATED
  4. AMITRYPTALINE [Concomitant]
     Active Substance: AMITRIPTYLINE
  5. RESERVATROL [Concomitant]
  6. VIT. B COMPLEX [Concomitant]
  7. MAGNESIUM [Concomitant]
     Active Substance: MAGNESIUM
  8. VIT. C. [Concomitant]
  9. LYRICA [Suspect]
     Active Substance: PREGABALIN
     Indication: DRUG THERAPY
     Route: 048
     Dates: start: 20171204, end: 20180119
  10. LOVAZA [Concomitant]
     Active Substance: OMEGA-3-ACID ETHYL ESTERS
  11. ADVAIR DISKUS [Concomitant]
     Active Substance: FLUTICASONE PROPIONATE\SALMETEROL XINAFOATE
  12. ACIDOLPHYLLIS [Concomitant]
  13. BIOTIN [Concomitant]
     Active Substance: BIOTIN
  14. CALCIUM [Concomitant]
     Active Substance: CALCIUM
  15. IMITREX [Concomitant]
     Active Substance: SUMATRIPTAN SUCCINATE
  16. PROVENTIL [Concomitant]
     Active Substance: ALBUTEROL
  17. POTASSIUM [Concomitant]
     Active Substance: POTASSIUM
  18. CROMALYN [Concomitant]
  19. COQ10 [Concomitant]
     Active Substance: UBIDECARENONE
  20. LEVOTHYROXINE. [Concomitant]
     Active Substance: LEVOTHYROXINE
  21. SINGULAIR [Concomitant]
     Active Substance: MONTELUKAST SODIUM
  22. FLONASE [Concomitant]
     Active Substance: FLUTICASONE PROPIONATE
  23. CRANBERRY EXTRA [Concomitant]
  24. VITAMIN E [Concomitant]
     Active Substance: .ALPHA.-TOCOPHEROL
  25. VIT D.3 [Concomitant]
  26. TEMERIC (CUMUN) [Concomitant]
  27. OMEPRAZOLE. [Concomitant]
     Active Substance: OMEPRAZOLE
  28. LOVASTATIN. [Concomitant]
     Active Substance: LOVASTATIN
  29. GLUCOSAMINE?CHONDROTIN [Concomitant]

REACTIONS (2)
  - Formication [None]
  - Malaise [None]

NARRATIVE: CASE EVENT DATE: 20171210
